FAERS Safety Report 16775926 (Version 2)
Quarter: 2019Q3

REPORT INFORMATION
  Report Type: Spontaneous
  Country: US (occurrence: US)
  Receive Date: 20190905
  Receipt Date: 20190906
  Transmission Date: 20191005
  Serious: Yes (Other)
  Sender: FDA-Public Use
  Company Number: US-PFIZER INC-2019364518

PATIENT
  Sex: Male

DRUGS (1)
  1. ROBITUSSIN LINGERING COLD LONG-ACTING COUGH GELS [Suspect]
     Active Substance: DEXTROMETHORPHAN HYDROBROMIDE
     Dosage: UNK

REACTIONS (3)
  - Product size issue [Unknown]
  - Foreign body in respiratory tract [Unknown]
  - Cerebrovascular accident [Unknown]
